FAERS Safety Report 25191389 (Version 1)
Quarter: 2025Q2

REPORT INFORMATION
  Report Type: Spontaneous
  Country: BE (occurrence: BE)
  Receive Date: 20250411
  Receipt Date: 20250411
  Transmission Date: 20250717
  Serious: Yes (Other)
  Sender: MERCK SHARP AND DOHME
  Company Number: BE-009507513-2271649

PATIENT
  Age: 82 Year
  Sex: Male

DRUGS (1)
  1. PEMBROLIZUMAB [Suspect]
     Active Substance: PEMBROLIZUMAB
     Indication: Squamous cell carcinoma of skin
     Route: 065
     Dates: start: 202108, end: 202209

REACTIONS (2)
  - Polymyalgia rheumatica [Recovered/Resolved]
  - Heart failure with reduced ejection fraction [Recovered/Resolved]

NARRATIVE: CASE EVENT DATE: 20220101
